FAERS Safety Report 8072096-X (Version None)
Quarter: 2012Q1

REPORT INFORMATION
  Report Type: 
  Country: None (occurrence: None)
  Receive Date: 20120126
  Receipt Date: 20120116
  Transmission Date: 20120608
  Serious: Yes (Hospitalization)
  Sender: FDA-Public Use
  Company Number: US-GENZYME-FABR-1002327

PATIENT
  Sex: Male

DRUGS (3)
  1. FABRAZYME [Suspect]
     Indication: FABRY'S DISEASE
     Dosage: 40 MG, Q2W
     Route: 042
  2. ACETAMINOPHEN [Concomitant]
     Indication: PREMEDICATION
     Dosage: 325 MG, Q2W
  3. BENADRYL [Concomitant]
     Indication: PREMEDICATION
     Dosage: 25 MG, Q2W

REACTIONS (2)
  - HAEMOGLOBIN DECREASED [None]
  - OPTIC NEURITIS [None]
